FAERS Safety Report 5220231-0 (Version None)
Quarter: 2007Q1

REPORT INFORMATION
  Report Type: 
  Country: None (occurrence: None)
  Receive Date: 20061201
  Receipt Date: 20060721
  Transmission Date: 20070707
  Serious: No
  Sender: FDA-Public Use
  Company Number: 2006PV017989

PATIENT
  Age: 60 Year
  Sex: Female
  Weight: 140.1615 kg

DRUGS (4)
  1. BYETTA [Suspect]
     Indication: DIABETES MELLITUS NON-INSULIN-DEPENDENT
     Dosage: SEE IMAGE
     Route: 058
     Dates: start: 20051125
  2. BYETTA [Suspect]
     Indication: DIABETES MELLITUS NON-INSULIN-DEPENDENT
     Dosage: SEE IMAGE
     Route: 058
     Dates: start: 20060101
  3. ACTOS /USA/ [Concomitant]
  4. BENICAR [Concomitant]

REACTIONS (6)
  - BLOOD GLUCOSE DECREASED [None]
  - DIZZINESS [None]
  - FEELING JITTERY [None]
  - NAUSEA [None]
  - NERVOUSNESS [None]
  - WEIGHT DECREASED [None]
